FAERS Safety Report 5005696-1 (Version None)
Quarter: 2006Q2

REPORT INFORMATION
  Report Type: 
  Country: None (occurrence: None)
  Receive Date: 20060518
  Receipt Date: 20060511
  Transmission Date: 20061013
  Serious: Yes (Other)
  Sender: FDA-Public Use
  Company Number: PHBS2006NO07031

PATIENT
  Age: 59 Year
  Sex: Male

DRUGS (4)
  1. SENDOXAN [Concomitant]
     Dosage: 400 MG, QW
     Route: 065
     Dates: start: 20011101, end: 20040201
  2. PREDNISOLONE [Concomitant]
     Dosage: 15 DAILY
     Route: 065
     Dates: start: 20011101, end: 20040201
  3. VELCADE [Concomitant]
     Dosage: 4 DOSES OVER 4 WEEKS
     Route: 042
     Dates: start: 20040301
  4. ZOMETA [Suspect]
     Indication: HYPERCALCAEMIA
     Dosage: 4 MG, QMO
     Route: 065
     Dates: start: 20020201

REACTIONS (7)
  - BONE DISORDER [None]
  - BREATH ODOUR [None]
  - DYSGEUSIA [None]
  - IMPAIRED HEALING [None]
  - ORAL PAIN [None]
  - TOOTH DISORDER [None]
  - TOOTH EXTRACTION [None]
